FAERS Safety Report 18339932 (Version 1)
Quarter: 2020Q4

REPORT INFORMATION
  Report Type: Spontaneous
  Country: DE (occurrence: DE)
  Receive Date: 20201002
  Receipt Date: 20201002
  Transmission Date: 20210113
  Serious: Yes (Other)
  Sender: FDA-Public Use
  Company Number: DE-TEVA-2020-DE-1833202

PATIENT
  Age: 48 Year
  Sex: Male
  Weight: 135 kg

DRUGS (8)
  1. METFORMIN [Concomitant]
     Active Substance: METFORMIN HYDROCHLORIDE
     Indication: DIABETES MELLITUS
     Dosage: 1000
     Route: 048
  2. REPATHA [Concomitant]
     Active Substance: EVOLOCUMAB
     Indication: TYPE IIA HYPERLIPIDAEMIA
     Dosage: 140
     Route: 058
  3. ENTRESTO [Concomitant]
     Active Substance: SACUBITRIL\VALSARTAN
     Dosage: 97/103
     Route: 048
  4. ROSUVASTATIN. [Suspect]
     Active Substance: ROSUVASTATIN
     Indication: TYPE IIA HYPERLIPIDAEMIA
     Dosage: 5 MG
     Route: 048
  5. BISOPROLOL [Concomitant]
     Active Substance: BISOPROLOL
     Dosage: 10
     Route: 048
  6. AMLODIPINE [Concomitant]
     Active Substance: AMLODIPINE BESYLATE
     Indication: HYPERTENSION
     Dosage: 5
     Route: 048
  7. BRILIQUE [Concomitant]
     Active Substance: TICAGRELOR
     Route: 048
  8. ASS 100 [Concomitant]
     Active Substance: ASPIRIN
     Dosage: 100
     Route: 048

REACTIONS (3)
  - Gait inability [Recovered/Resolved]
  - Dyspnoea [Recovered/Resolved]
  - Myalgia [Recovered/Resolved]

NARRATIVE: CASE EVENT DATE: 20200415
